FAERS Safety Report 4693224-X (Version None)
Quarter: 2005Q2

REPORT INFORMATION
  Report Type: 
  Country: None (occurrence: None)
  Receive Date: 20050617
  Receipt Date: 20050608
  Transmission Date: 20051028
  Serious: Yes (Hospitalization)
  Sender: FDA-Public Use
  Company Number: US-GLAXOSMITHKLINE-A0561753A

PATIENT
  Age: 39 Year
  Sex: Male
  Weight: 72.7 kg

DRUGS (3)
  1. BC HEADACHE POWDER [Suspect]
     Indication: PROPHYLAXIS
     Route: 048
     Dates: start: 20050101
  2. NEXIUM [Concomitant]
     Dates: start: 20050101
  3. ANTIDEPRESSANT (UNSPECIFIED) [Concomitant]
     Indication: DEPRESSION
     Dates: start: 20050101

REACTIONS (1)
  - MYOCARDIAL INFARCTION [None]
